FAERS Safety Report 6285150-X (Version None)
Quarter: 2009Q3

REPORT INFORMATION
  Report Type: 
  Country: None (occurrence: None)
  Receive Date: 20090727
  Receipt Date: 20090723
  Transmission Date: 20100115
  Serious: Yes (Hospitalization)
  Sender: FDA-Public Use
  Company Number: AT-BRISTOL-MYERS SQUIBB COMPANY-14712400

PATIENT
  Age: 75 Year
  Sex: Female
  Weight: 77 kg

DRUGS (7)
  1. FOSICOMB TABS [Suspect]
     Indication: CARDIAC FAILURE CHRONIC
     Dosage: FOSINOPRIL 20MG + HCTZ 12.5MG
     Route: 048
  2. LASILACTONE [Suspect]
     Dosage: CAPSULE;FUROSEMIDE20 MG+SPIRONOLACTONE50MG
     Route: 048
  3. SINTROM [Suspect]
     Dosage: TABS
     Route: 048
  4. BERODUAL [Concomitant]
     Dosage: DOSIERAEROSOL(FENOTEROL HYDROBROMIDE),1X2
  5. SERETIDE [Concomitant]
     Dosage: 1DOSAGEFORM=50MICROGRAM/250MICROGRAM
  6. ISOPTIN [Concomitant]
     Dosage: RETARD
  7. SALMETEROL [Concomitant]
     Dosage: EINZELDOSIERTES PULVER ZUR INHALATION
     Route: 055

REACTIONS (3)
  - COAGULATION TIME PROLONGED [None]
  - EPISTAXIS [None]
  - RENAL IMPAIRMENT [None]
